FAERS Safety Report 4736859-8 (Version None)
Quarter: 2005Q3

REPORT INFORMATION
  Report Type: 
  Country: None (occurrence: None)
  Receive Date: 20050808
  Receipt Date: 20050523
  Transmission Date: 20060218
  Serious: Yes (Death, Congenital Anomaly)
  Sender: FDA-Public Use
  Company Number: US-GLAXOSMITHKLINE-A0559798B

PATIENT

DRUGS (1)
  1. WELLBUTRIN [Suspect]
     Indication: MAJOR DEPRESSION
     Dosage: 300MG PER DAY
     Dates: start: 20040607

REACTIONS (4)
  - ABORTION INDUCED [None]
  - ALPHA 1 FOETOPROTEIN ABNORMAL [None]
  - ANENCEPHALY [None]
  - DRUG EXPOSURE DURING PREGNANCY [None]
